FAERS Safety Report 4552850-9 (Version None)
Quarter: 2005Q1

REPORT INFORMATION
  Report Type: 
  Country: None (occurrence: None)
  Receive Date: 20050112
  Receipt Date: 20050112
  Transmission Date: 20050727
  Serious: Yes (Hospitalization)
  Sender: FDA-Public Use
  Company Number: None

PATIENT
  Age: 26 Year
  Sex: Male

DRUGS (2)
  1. ADALAT CC [Suspect]
     Indication: HYPERTENSION
     Dosage: 1 PO QD
     Route: 048
     Dates: start: 20050111, end: 20050112
  2. MIDRIN (IDA) [Suspect]
     Indication: MIGRAINE
     Dosage: 2 AT ONSET PRN, ETC
     Dates: start: 20050111, end: 20050112

REACTIONS (4)
  - ASTHENIA [None]
  - DIZZINESS [None]
  - FLUSHING [None]
  - SINUS TACHYCARDIA [None]
